FAERS Safety Report 24814037 (Version 2)
Quarter: 2025Q1

REPORT INFORMATION
  Report Type: Spontaneous
  Country: CA (occurrence: CA)
  Receive Date: 20250107
  Receipt Date: 20250313
  Transmission Date: 20250409
  Serious: Yes (Hospitalization, Other)
  Sender: CELLTRION
  Company Number: CA-PFIZER INC-202400244875

PATIENT

DRUGS (11)
  1. INFLECTRA [Suspect]
     Active Substance: INFLIXIMAB-DYYB
     Indication: Colitis ulcerative
     Route: 042
     Dates: start: 20240814, end: 20240814
  2. INFLECTRA [Suspect]
     Active Substance: INFLIXIMAB-DYYB
     Route: 042
     Dates: start: 20240830, end: 20240830
  3. INFLECTRA [Suspect]
     Active Substance: INFLIXIMAB-DYYB
     Route: 042
     Dates: start: 20240926, end: 20240926
  4. CIPRO [Concomitant]
     Active Substance: CIPROFLOXACIN HYDROCHLORIDE
     Dates: start: 20240815
  5. ENTYVIO [Concomitant]
     Active Substance: VEDOLIZUMAB
     Dates: start: 20241016
  6. FLAGYL [Concomitant]
     Active Substance: METRONIDAZOLE\METRONIDAZOLE HYDROCHLORIDE
     Dates: start: 20240801
  7. METHYLPREDNISOLONE [Concomitant]
     Active Substance: METHYLPREDNISOLONE
     Dates: start: 20241224
  8. PREDNISONE [Concomitant]
     Active Substance: PREDNISONE
     Indication: Colitis ulcerative
     Dates: start: 20240815
  9. PREDNISONE [Concomitant]
     Active Substance: PREDNISONE
  10. SULFASALAZINE [Concomitant]
     Active Substance: SULFASALAZINE
  11. SULFATRIM [Concomitant]
     Active Substance: SULFAMETHOXAZOLE\TRIMETHOPRIM
     Dates: start: 20240815

REACTIONS (7)
  - Condition aggravated [Not Recovered/Not Resolved]
  - Iron deficiency anaemia [Unknown]
  - Therapy non-responder [Unknown]
  - Off label use [Unknown]
  - Drug ineffective [Unknown]
  - Night sweats [Unknown]
  - Dyspnoea [Unknown]

NARRATIVE: CASE EVENT DATE: 20240101
